FAERS Safety Report 9736366 (Version 1)
Quarter: 2013Q4

REPORT INFORMATION
  Report Type: Spontaneous
  Country: FR (occurrence: FR)
  Receive Date: 20131206
  Receipt Date: 20131206
  Transmission Date: 20140711
  Serious: Yes (Other)
  Sender: FDA-Public Use
  Company Number: FR-ALLERGAN-1318789US

PATIENT
  Age: 62 Year
  Sex: Female

DRUGS (8)
  1. VISTABEL [Suspect]
     Indication: SKIN WRINKLING
     Dosage: UNK
     Dates: start: 201001, end: 201001
  2. VISTABEL [Suspect]
     Indication: SKIN WRINKLING
  3. VISTABEL [Suspect]
     Indication: SKIN WRINKLING
  4. JUVEDERM 3 [Suspect]
     Indication: SKIN WRINKLING
     Dosage: UNK
     Dates: start: 201010, end: 201010
  5. JUVEDERM 3 [Suspect]
     Dosage: UNK
     Dates: start: 201009, end: 201009
  6. PERLANE [Concomitant]
     Dosage: UNK
     Dates: start: 2000, end: 2000
  7. RESTYLANE [Concomitant]
     Dosage: UNK
     Dates: start: 2000, end: 2000
  8. SCULPTRA [Concomitant]
     Dosage: 2 UNK, UNK
     Dates: start: 2009

REACTIONS (2)
  - Metastases to liver [Unknown]
  - Granuloma [Not Recovered/Not Resolved]
